FAERS Safety Report 5691619-9 (Version None)
Quarter: 2008Q2

REPORT INFORMATION
  Report Type: 
  Country: None (occurrence: None)
  Receive Date: 20080402
  Receipt Date: 20080319
  Transmission Date: 20081010
  Serious: Yes (Hospitalization)
  Sender: FDA-Public Use
  Company Number: AU-AMGEN-QUU250262

PATIENT
  Age: 57 Year
  Sex: Female

DRUGS (4)
  1. NEULASTA [Suspect]
     Indication: CHEMOTHERAPY
     Dates: start: 20071023
  2. TAXOTERE [Suspect]
  3. ADRIAMYCIN [Suspect]
  4. CYCLOPHOSPHAMIDE [Suspect]

REACTIONS (1)
  - FEBRILE NEUTROPENIA [None]
